FAERS Safety Report 21956043 (Version 1)
Quarter: 2023Q1

REPORT INFORMATION
  Report Type: Report from Study
  Country: CA (occurrence: CA)
  Receive Date: 20230206
  Receipt Date: 20230206
  Transmission Date: 20230418
  Serious: Yes (Death, Hospitalization, Other)
  Sender: FDA-Public Use
  Company Number: CA-BIOGEN-2021BI01000388

PATIENT
  Age: 68 Year
  Sex: Male
  Weight: 127.3 kg

DRUGS (29)
  1. DALFAMPRIDINE [Suspect]
     Active Substance: DALFAMPRIDINE
     Indication: Multiple sclerosis
     Route: 050
     Dates: start: 20200319
  2. DALFAMPRIDINE [Suspect]
     Active Substance: DALFAMPRIDINE
     Route: 050
     Dates: start: 20210211
  3. DALFAMPRIDINE [Suspect]
     Active Substance: DALFAMPRIDINE
     Route: 050
     Dates: start: 20200319, end: 20221123
  4. HYDROCHLOROTHIAZIDE [Concomitant]
     Active Substance: HYDROCHLOROTHIAZIDE
     Indication: Product used for unknown indication
     Route: 050
  5. INSULIN NOS [Concomitant]
     Active Substance: INSULIN NOS
     Indication: Product used for unknown indication
     Route: 050
  6. OZEMPIC [Concomitant]
     Active Substance: SEMAGLUTIDE
     Indication: Product used for unknown indication
     Dosage: EVERY FRIDAYS
     Route: 050
  7. MAYZENT [Concomitant]
     Active Substance: SIPONIMOD
     Indication: Product used for unknown indication
     Route: 050
  8. MAYZENT [Concomitant]
     Active Substance: SIPONIMOD
     Route: 050
  9. LANTUS [Concomitant]
     Active Substance: INSULIN GLARGINE
     Indication: Product used for unknown indication
     Dosage: 15 UNITS AT BEDTIME
     Route: 050
  10. LANTUS [Concomitant]
     Active Substance: INSULIN GLARGINE
     Route: 050
  11. LANTUS [Concomitant]
     Active Substance: INSULIN GLARGINE
     Route: 050
  12. LANTUS [Concomitant]
     Active Substance: INSULIN GLARGINE
     Route: 050
  13. LANTUS [Concomitant]
     Active Substance: INSULIN GLARGINE
     Route: 050
  14. IBUPROFEN [Concomitant]
     Active Substance: IBUPROFEN
     Indication: Product used for unknown indication
     Route: 050
  15. IBUPROFEN [Concomitant]
     Active Substance: IBUPROFEN
     Route: 050
  16. IBUPROFEN [Concomitant]
     Active Substance: IBUPROFEN
     Route: 050
  17. IBUPROFEN [Concomitant]
     Active Substance: IBUPROFEN
     Route: 050
  18. IBUPROFEN [Concomitant]
     Active Substance: IBUPROFEN
     Route: 050
  19. LORAZEPAM [Concomitant]
     Active Substance: LORAZEPAM
     Indication: Product used for unknown indication
     Dosage: BEDTIME
     Route: 050
  20. LORAZEPAM [Concomitant]
     Active Substance: LORAZEPAM
     Route: 050
  21. LORAZEPAM [Concomitant]
     Active Substance: LORAZEPAM
     Route: 050
  22. LORAZEPAM [Concomitant]
     Active Substance: LORAZEPAM
     Route: 050
  23. LORAZEPAM [Concomitant]
     Active Substance: LORAZEPAM
     Route: 050
  24. PANTOPRAZOLE [Concomitant]
     Active Substance: PANTOPRAZOLE
     Indication: Product used for unknown indication
     Route: 050
  25. PANTOPRAZOLE [Concomitant]
     Active Substance: PANTOPRAZOLE
     Route: 050
  26. PANTOPRAZOLE [Concomitant]
     Active Substance: PANTOPRAZOLE
     Route: 050
  27. PANTOPRAZOLE [Concomitant]
     Active Substance: PANTOPRAZOLE
     Route: 050
  28. PANTOPRAZOLE [Concomitant]
     Active Substance: PANTOPRAZOLE
     Route: 050
  29. PANTOPRAZOLE [Concomitant]
     Active Substance: PANTOPRAZOLE
     Route: 050

REACTIONS (4)
  - Death [Fatal]
  - Cerebrovascular accident [Unknown]
  - Hemianopia [Unknown]
  - Hemiplegia [Unknown]

NARRATIVE: CASE EVENT DATE: 20210318
